FAERS Safety Report 12486274 (Version 1)
Quarter: 2016Q2

REPORT INFORMATION
  Report Type: Spontaneous
  Country: PL (occurrence: PL)
  Receive Date: 20160621
  Receipt Date: 20160621
  Transmission Date: 20160815
  Serious: Yes (Other)
  Sender: FDA-Public Use
  Company Number: PL-ACTAVIS-2016-12502

PATIENT
  Age: 80 Year
  Sex: Male

DRUGS (3)
  1. FENTANYL ACTAVIS [Suspect]
     Active Substance: FENTANYL
     Dosage: UNK (STRENGTH: 25 MCG/HR)
     Route: 062
     Dates: start: 201404, end: 201506
  2. FENTANYL ACTAVIS [Suspect]
     Active Substance: FENTANYL
     Dosage: UNK (STRENGTH: 50 MCG/HR)
     Route: 062
     Dates: start: 201507
  3. FENTANYL ACTAVIS [Suspect]
     Active Substance: FENTANYL
     Indication: PAIN
     Dosage: UNK (STRENGTH 100 MCG/HR) - ADMINISTERED ON 21,24 AND 28 MAY 2016
     Dates: start: 20160521

REACTIONS (13)
  - Decreased appetite [Unknown]
  - Hiccups [Unknown]
  - Hyperhidrosis [Unknown]
  - Dizziness [Unknown]
  - Dry mouth [Unknown]
  - Toxicity to various agents [Unknown]
  - Dysuria [Unknown]
  - Loss of consciousness [Unknown]
  - Blindness [Unknown]
  - Heart rate irregular [Unknown]
  - Somnolence [Unknown]
  - Disorientation [Unknown]
  - Muscle spasms [Unknown]

NARRATIVE: CASE EVENT DATE: 20160527
